FAERS Safety Report 23442955 (Version 1)
Quarter: 2024Q1

REPORT INFORMATION
  Report Type: Spontaneous
  Country: US (occurrence: None)
  Receive Date: 20240125
  Receipt Date: 20240125
  Transmission Date: 20240410
  Serious: Yes (Hospitalization)
  Sender: FDA-Public Use
  Company Number: None

PATIENT
  Sex: Female

DRUGS (1)
  1. CAPECITABINE [Suspect]
     Active Substance: CAPECITABINE
     Indication: Metastases to bone
     Dosage: TAKE 3 TABLETS BY MOUTH AFTER BREAKFAST AND 2 TABLETS AFTER DINNER FOR 14 DAYS ON AND 7 DAYS OFF.
     Route: 048
     Dates: start: 202310

REACTIONS (4)
  - Pancreatitis [None]
  - Cholecystectomy [None]
  - Nephrolithiasis [None]
  - Therapy interrupted [None]
